FAERS Safety Report 6584339-X (Version None)
Quarter: 2010Q1

REPORT INFORMATION
  Report Type: 
  Country: None (occurrence: None)
  Receive Date: 20100216
  Receipt Date: 20100127
  Transmission Date: 20100710
  Serious: No
  Sender: FDA-Public Use
  Company Number: US-ABBOTT-10P-163-0622716-00

PATIENT
  Sex: Male
  Weight: 83.99 kg

DRUGS (2)
  1. SIMCOR [Suspect]
     Indication: HIGH DENSITY LIPOPROTEIN DECREASED
     Dosage: 500/20 MG WITH DINNER
     Route: 048
     Dates: start: 20100126
  2. ASPIRIN [Concomitant]
     Indication: DRUG USE FOR UNKNOWN INDICATION
     Dosage: IN MORNING
     Route: 048

REACTIONS (3)
  - DIARRHOEA [None]
  - FLUSHING [None]
  - PARAESTHESIA [None]
